FAERS Safety Report 14885844 (Version 1)
Quarter: 2018Q2

REPORT INFORMATION
  Report Type: Report from Study
  Country: US (occurrence: US)
  Receive Date: 20180512
  Receipt Date: 20180512
  Transmission Date: 20180711
  Serious: Yes (Other)
  Sender: FDA-Public Use
  Company Number: US-ROCHE-2108004

PATIENT
  Sex: Male

DRUGS (1)
  1. LUCENTIS [Suspect]
     Active Substance: RANIBIZUMAB
     Indication: PRODUCT USED FOR UNKNOWN INDICATION
     Route: 050

REACTIONS (16)
  - Peripheral swelling [Unknown]
  - Gait disturbance [Unknown]
  - Arthralgia [Unknown]
  - Myalgia [Unknown]
  - Weight decreased [Unknown]
  - Retinal cyst [Unknown]
  - Vision blurred [Unknown]
  - Decreased appetite [Unknown]
  - Cough [Unknown]
  - Dysuria [Unknown]
  - Retinal exudates [Unknown]
  - Fatigue [Unknown]
  - Cystoid macular oedema [Unknown]
  - Retinal haemorrhage [Unknown]
  - Depression [Unknown]
  - Diabetic retinal oedema [Unknown]
